FAERS Safety Report 8976635 (Version 1)
Quarter: 2012Q4

REPORT INFORMATION
  Report Type: 
  Country: JP (occurrence: JP)
  Receive Date: 20121220
  Receipt Date: 20121220
  Transmission Date: 20130627
  Serious: Yes (Hospitalization)
  Sender: FDA-Public Use
  Company Number: JP-009507513-1212JPN006357

PATIENT
  Age: 62 Year
  Sex: Female
  Weight: 44 kg

DRUGS (5)
  1. PEGINTRON [Suspect]
     Indication: CHRONIC HEPATITIS C
     Dosage: 1.5 Microgram per kilogram, qw
     Route: 058
     Dates: start: 20121108
  2. REBETOL [Suspect]
     Indication: CHRONIC HEPATITIS C
     Dosage: 400 mg, qd
     Route: 048
     Dates: start: 20121108
  3. TELAVIC [Suspect]
     Indication: CHRONIC HEPATITIS C
     Dosage: 1500 mg, qd
     Route: 048
     Dates: start: 20121108
  4. GASTER [Concomitant]
     Indication: PROPHYLAXIS
     Dosage: 40 mg, qd
     Route: 048
     Dates: start: 20121108
  5. LOXONIN [Concomitant]
     Indication: PROPHYLAXIS
     Dosage: 180 mg, qd
     Dates: start: 20121108

REACTIONS (1)
  - Toxic skin eruption [Recovered/Resolved]
